FAERS Safety Report 7007422-3 (Version None)
Quarter: 2010Q3

REPORT INFORMATION
  Report Type: 
  Country: None (occurrence: None)
  Receive Date: 20100922
  Receipt Date: 20100914
  Transmission Date: 20110219
  Serious: Yes (Other)
  Sender: FDA-Public Use
  Company Number: US-B.I. PHARMACEUTICALS,INC./RIDGEFIELD-2010-BP-10558PF

PATIENT
  Sex: Female

DRUGS (11)
  1. SPIRIVA [Suspect]
     Route: 055
     Dates: start: 20100101
  2. TRAMADOL HCL [Concomitant]
  3. ATENOLOL [Concomitant]
  4. HYDROXYZINE HCL [Concomitant]
  5. POTASSIUM [Concomitant]
  6. ORPHENADRINE COMPOUND-DS [Concomitant]
  7. CLONAZEPAM [Concomitant]
  8. LEXAPRO [Concomitant]
  9. VENTOLIN [Concomitant]
  10. METOCLOPRAMIDE HCL [Concomitant]
  11. PROAIR HFA [Concomitant]

REACTIONS (7)
  - ANKLE FRACTURE [None]
  - BACK PAIN [None]
  - BREAST ENLARGEMENT [None]
  - CEREBROVASCULAR ACCIDENT [None]
  - HAEMORRHOIDS [None]
  - MYOCARDIAL INFARCTION [None]
  - RASH [None]
